FAERS Safety Report 9521113 (Version 1)
Quarter: 2013Q3

REPORT INFORMATION
  Report Type: Spontaneous
  Country: US (occurrence: US)
  Receive Date: 20130913
  Receipt Date: 20130913
  Transmission Date: 20140515
  Serious: No
  Sender: FDA-Public Use
  Company Number: US-BIOGENIDEC-2013BI085203

PATIENT
  Sex: Male

DRUGS (1)
  1. TYSABRI [Suspect]
     Indication: MULTIPLE SCLEROSIS
     Route: 042
     Dates: start: 20130509

REACTIONS (3)
  - Temperature intolerance [Recovered/Resolved with Sequelae]
  - Stress [Recovered/Resolved with Sequelae]
  - Contusion [Recovered/Resolved with Sequelae]
